FAERS Safety Report 4419471-X (Version None)
Quarter: 2004Q3

REPORT INFORMATION
  Report Type: 
  Country: None (occurrence: None)
  Receive Date: 20040809
  Receipt Date: 20040205
  Transmission Date: 20050211
  Serious: No
  Sender: FDA-Public Use
  Company Number: US-GLAXOSMITHKLINE-A0496794A

PATIENT
  Sex: Female

DRUGS (1)
  1. PAXIL [Suspect]
     Dosage: 100MG PER DAY
     Route: 048
     Dates: start: 20010130

REACTIONS (7)
  - DYSARTHRIA [None]
  - HEADACHE [None]
  - HYPERHIDROSIS [None]
  - HYPOAESTHESIA [None]
  - INSOMNIA [None]
  - MUSCLE SPASMS [None]
  - PHARMACEUTICAL PRODUCT COMPLAINT [None]
